FAERS Safety Report 11181921 (Version 2)
Quarter: 2016Q3

REPORT INFORMATION
  Report Type: Spontaneous
  Country: US (occurrence: US)
  Receive Date: 20150611
  Receipt Date: 20160915
  Transmission Date: 20161109
  Serious: No
  Sender: FDA-Public Use
  Company Number: US-ASTELLAS-2015US015346

PATIENT
  Sex: Male

DRUGS (1)
  1. XTANDI [Suspect]
     Active Substance: ENZALUTAMIDE
     Indication: HORMONE-REFRACTORY PROSTATE CANCER
     Route: 048
     Dates: start: 20150305

REACTIONS (9)
  - Fatigue [Unknown]
  - Decreased appetite [Unknown]
  - Sinus disorder [Unknown]
  - Nasal congestion [Unknown]
  - Anxiety [Unknown]
  - Dysgeusia [Unknown]
  - Hypertension [Unknown]
  - Diarrhoea [Unknown]
  - Productive cough [Unknown]
